FAERS Safety Report 7789171-7 (Version None)
Quarter: 2011Q3

REPORT INFORMATION
  Report Type: 
  Country: None (occurrence: None)
  Receive Date: 20110930
  Receipt Date: 20110921
  Transmission Date: 20111222
  Serious: Yes (Hospitalization)
  Sender: FDA-Public Use
  Company Number: US-JNJFOC-20110906234

PATIENT
  Sex: Female
  Weight: 37 kg

DRUGS (12)
  1. CALCIUM WITH VITAMIN D [Concomitant]
  2. NYSTATIN [Concomitant]
  3. METHOTREXATE [Concomitant]
  4. ANTIBIOTICS [Concomitant]
     Indication: INFLAMMATORY BOWEL DISEASE
  5. PREDNISONE [Concomitant]
  6. METRONIDAZOLE [Concomitant]
     Indication: ACROCHORDON
  7. TYSABRI [Concomitant]
  8. REMICADE [Suspect]
     Indication: CROHN'S DISEASE
     Route: 042
     Dates: end: 20090306
  9. CHOLECALCIFEROL [Concomitant]
  10. MULTIVITAMIN [Concomitant]
  11. IRON [Concomitant]
  12. TYSABRI [Concomitant]
     Dates: start: 20010831

REACTIONS (1)
  - CROHN'S DISEASE [None]
